FAERS Safety Report 7535787-2 (Version None)
Quarter: 2011Q2

REPORT INFORMATION
  Report Type: 
  Country: None (occurrence: None)
  Receive Date: 20110602
  Receipt Date: 20110519
  Transmission Date: 20111010
  Serious: Yes (Other)
  Sender: FDA-Public Use
  Company Number: TPA2011A02470

PATIENT
  Age: 61 Year
  Sex: Female
  Weight: 56.246 kg

DRUGS (7)
  1. SUPPLEMENT[10066215 - SUPPLEMENTATION THERAPY] [V.14 O] [Concomitant]
  2. ACTOS [Suspect]
     Indication: TYPE 2 DIABETES MELLITUS
     Dosage: PER ORAL
     Route: 048
     Dates: start: 19990101, end: 20110101
  3. GLIPIZIDE (GLIPIZIIDE) [Concomitant]
  4. VITAMIN E [Concomitant]
  5. ASCORBIC ACID [Concomitant]
  6. LOTREL [Concomitant]
  7. TOPROL-XL [Concomitant]

REACTIONS (2)
  - CEREBROVASCULAR ACCIDENT [None]
  - VIITH NERVE PARALYSIS [None]
